FAERS Safety Report 6397944-0 (Version None)
Quarter: 2009Q4

REPORT INFORMATION
  Report Type: 
  Country: None (occurrence: None)
  Receive Date: 20091006
  Receipt Date: 20090928
  Transmission Date: 20100525
  Serious: Yes (Other)
  Sender: FDA-Public Use
  Company Number: TRP_06464_2009

PATIENT
  Sex: Male

DRUGS (2)
  1. RIBAVARIN [Suspect]
     Indication: HEPATITIS C
     Dosage: 1200 MG, DAILY
     Dates: start: 20090513
  2. PEGASYS [Suspect]
     Indication: HEPATITIS C
     Dosage: 180 UG OD
     Dates: start: 20090513

REACTIONS (5)
  - BLOOD COUNT ABNORMAL [None]
  - FATIGUE [None]
  - HEPATIC ENZYME INCREASED [None]
  - PLATELET COUNT DECREASED [None]
  - VITREOUS DISORDER [None]
